FAERS Safety Report 9563730 (Version 1)
Quarter: 2013Q1

REPORT INFORMATION
  Report Type: Spontaneous
  Country: US (occurrence: None)
  Receive Date: 20121218
  Receipt Date: 20121218
  Transmission Date: 20140127
  Serious: Yes (Other)
  Sender: FDA-Public Use
  Company Number: PHEH2011US011859

PATIENT
  Age: 62 Year
  Sex: Male

DRUGS (3)
  1. ZOMETA (ZOLEDRONATE) SOLUTION FOR INJECTION [Suspect]
     Route: 042
  2. TAXOTERE (DOCETAXEL) [Concomitant]
  3. PREDNISONE (PREDNISONE) [Concomitant]

REACTIONS (1)
  - Neoplasm progression [None]
